FAERS Safety Report 10095658 (Version 4)
Quarter: 2014Q3

REPORT INFORMATION
  Report Type: Spontaneous
  Country: JP (occurrence: JP)
  Receive Date: 20140422
  Receipt Date: 20140828
  Transmission Date: 20150326
  Serious: Yes (Hospitalization, Other)
  Sender: FDA-Public Use
  Company Number: JP-PFIZER INC-2014110641

PATIENT
  Age: 63 Year
  Sex: Male
  Weight: 56 kg

DRUGS (7)
  1. MICARDIS [Concomitant]
     Active Substance: TELMISARTAN
     Dosage: UNK
     Route: 048
  2. BROTIZOLAM [Concomitant]
     Active Substance: BROTIZOLAM
     Route: 048
  3. ANOLEXINON [Concomitant]
     Route: 048
  4. LYRICA [Suspect]
     Active Substance: PREGABALIN
     Indication: NEURALGIA
     Dosage: 75 MG, 2X/DAY
     Route: 048
     Dates: start: 20140324, end: 20140331
  5. OMEPRAZOLE. [Concomitant]
     Active Substance: OMEPRAZOLE
     Route: 065
  6. MACTASE [Concomitant]
     Route: 048
  7. SELBEX [Concomitant]
     Active Substance: TEPRENONE
     Route: 048

REACTIONS (6)
  - Hepatic function abnormal [Recovering/Resolving]
  - Neuropathy peripheral [Unknown]
  - Jaundice [Recovered/Resolved]
  - Pancreatitis [Unknown]
  - Biliary tract disorder [Unknown]
  - Oedema peripheral [Recovered/Resolved]

NARRATIVE: CASE EVENT DATE: 20140326
